FAERS Safety Report 4458972-5 (Version None)
Quarter: 2004Q3

REPORT INFORMATION
  Report Type: 
  Country: None (occurrence: None)
  Receive Date: 20040920
  Receipt Date: 20040920
  Transmission Date: 20050211
  Serious: Yes (Other)
  Sender: FDA-Public Use
  Company Number: None

PATIENT
  Sex: Female
  Weight: 113.3993 kg

DRUGS (8)
  1. GLIPIZIDE [Suspect]
     Indication: DIABETES MELLITUS
     Dosage: 10 MG ONCE DAILY (ORAL)
     Route: 048
     Dates: start: 20030501
  2. TEGRETOL [Concomitant]
  3. DEMADEX [Concomitant]
  4. SPIRONOLACTONE [Concomitant]
  5. LIPITOR [Concomitant]
  6. KCL TAB [Concomitant]
  7. ATIVAN [Concomitant]
  8. BACTRIM [Concomitant]

REACTIONS (2)
  - BLOOD GLUCOSE INCREASED [None]
  - DIABETES MELLITUS INADEQUATE CONTROL [None]
